FAERS Safety Report 11138966 (Version 1)
Quarter: 2015Q2

REPORT INFORMATION
  Report Type: Spontaneous
  Country: DE (occurrence: DE)
  Receive Date: 20150527
  Receipt Date: 20150527
  Transmission Date: 20150821
  Serious: Yes (Hospitalization)
  Sender: FDA-Public Use
  Company Number: DE-JNJFOC-20150514278

PATIENT
  Age: 32 Year
  Sex: Male
  Weight: 65 kg

DRUGS (7)
  1. PANTOZOL [Concomitant]
     Active Substance: PANTOPRAZOLE SODIUM
     Route: 065
  2. PREDNISOLON [Concomitant]
     Active Substance: PREDNISOLONE
     Indication: COLITIS ULCERATIVE
     Route: 065
     Dates: start: 20150115
  3. MESALAZIN [Concomitant]
     Active Substance: MESALAMINE
     Indication: COLITIS ULCERATIVE
     Route: 065
  4. MEZAVANT [Concomitant]
     Active Substance: MESALAMINE
     Indication: COLITIS ULCERATIVE
     Dosage: 1,2 G
     Route: 065
  5. COLIFOAM [Concomitant]
     Active Substance: HYDROCORTISONE
     Route: 054
  6. ENOXAPARIN [Concomitant]
     Active Substance: ENOXAPARIN
     Dosage: DOSE: 0,6, UNIT NOT PROVIDED,
     Route: 065
     Dates: start: 20150115
  7. SIMPONI [Suspect]
     Active Substance: GOLIMUMAB
     Indication: COLITIS ULCERATIVE
     Route: 058
     Dates: start: 20141120, end: 2015

REACTIONS (2)
  - Anal fissure [Recovered/Resolved]
  - Inflammation [Recovered/Resolved]

NARRATIVE: CASE EVENT DATE: 20150113
